FAERS Safety Report 18961523 (Version 3)
Quarter: 2021Q1

REPORT INFORMATION
  Report Type: Spontaneous
  Country: LB (occurrence: LB)
  Receive Date: 20210303
  Receipt Date: 20210318
  Transmission Date: 20210420
  Serious: Yes (Death, Hospitalization, Other)
  Sender: FDA-Public Use
  Company Number: LB-ASTELLAS-2021US007081

PATIENT
  Age: 75 Year
  Sex: Male

DRUGS (2)
  1. GALVUS MET [METFORMIN;VILDAGLIPTIN] [Concomitant]
     Active Substance: METFORMIN\VILDAGLIPTIN
     Indication: DIABETES MELLITUS
     Dosage: 50/1000 MG, ONCE DAILY (STARTED 2 YEARS AGO)
     Route: 065
  2. XTANDI [Suspect]
     Active Substance: ENZALUTAMIDE
     Indication: PROSTATE CANCER
     Dosage: 4 DF, ONCE DAILY (STARTED APPROXIMATELY SINCE 2 YEARS)
     Route: 048

REACTIONS (3)
  - Enteritis infectious [Fatal]
  - Blood glucose decreased [Recovering/Resolving]
  - Malignant neoplasm progression [Not Recovered/Not Resolved]

NARRATIVE: CASE EVENT DATE: 20201207
